FAERS Safety Report 12774505 (Version 1)
Quarter: 2016Q3

REPORT INFORMATION
  Report Type: Spontaneous
  Country: US (occurrence: US)
  Receive Date: 20160920
  Receipt Date: 20160920
  Transmission Date: 20161109
  Serious: No
  Sender: FDA-Public Use
  Company Number: None

PATIENT
  Age: 59 Year
  Sex: Female

DRUGS (1)
  1. HARVONI [Suspect]
     Active Substance: LEDIPASVIR\SOFOSBUVIR
     Indication: CHRONIC HEPATITIS C
     Dosage: 90-400MG 1TQD ORAL
     Route: 048
     Dates: start: 20160820

REACTIONS (2)
  - Immunosuppression [None]
  - Dermatitis contact [None]

NARRATIVE: CASE EVENT DATE: 20160920
